FAERS Safety Report 11835372 (Version 17)
Quarter: 2019Q1

REPORT INFORMATION
  Report Type: Report from Study
  Country: CA (occurrence: CA)
  Receive Date: 20151215
  Receipt Date: 20190215
  Transmission Date: 20190417
  Serious: Yes (Other)
  Sender: FDA-Public Use
  Company Number: CA-ROCHE-1251218

PATIENT
  Age: 53 Year
  Sex: Female
  Weight: 70.37 kg

DRUGS (13)
  1. CYMBALTA [Suspect]
     Active Substance: DULOXETINE HYDROCHLORIDE
     Indication: DEPRESSION
     Route: 065
     Dates: start: 201410
  2. PREDNISONE. [Concomitant]
     Active Substance: PREDNISONE
  3. LOSARTAN. [Concomitant]
     Active Substance: LOSARTAN
     Route: 065
  4. RATIO-OXYCOCET [Concomitant]
     Active Substance: ACETAMINOPHEN\OXYCODONE HYDROCHLORIDE
     Route: 065
     Dates: start: 201410
  5. FOLIC ACID. [Concomitant]
     Active Substance: FOLIC ACID
  6. RITUXAN [Suspect]
     Active Substance: RITUXIMAB
     Dosage: 18/DEC/2017, RECENT DOSE
     Route: 042
     Dates: start: 20150203
  7. CYMBALTA [Suspect]
     Active Substance: DULOXETINE HYDROCHLORIDE
     Route: 065
  8. TYLENOL [Concomitant]
     Active Substance: ACETAMINOPHEN
     Indication: PREMEDICATION
     Route: 048
     Dates: start: 20130711
  9. RITUXAN [Suspect]
     Active Substance: RITUXIMAB
     Indication: RHEUMATOID ARTHRITIS
     Route: 042
     Dates: start: 20130711
  10. METHOTREXATE. [Concomitant]
     Active Substance: METHOTREXATE
  11. BENADRYL [Concomitant]
     Active Substance: DIPHENHYDRAMINE HYDROCHLORIDE
     Indication: PREMEDICATION
     Route: 048
     Dates: start: 20130711
  12. SOLU-MEDROL [Concomitant]
     Active Substance: METHYLPREDNISOLONE SODIUM SUCCINATE
     Indication: PREMEDICATION
     Route: 042
     Dates: start: 20130711
  13. ALEVE [Concomitant]
     Active Substance: NAPROXEN SODIUM
     Dosage: AS REQUIRED
     Route: 065

REACTIONS (21)
  - Cold sweat [Unknown]
  - Bronchitis [Recovered/Resolved]
  - Infusion related reaction [Unknown]
  - Musculoskeletal stiffness [Not Recovered/Not Resolved]
  - Pain [Not Recovered/Not Resolved]
  - Blood pressure increased [Unknown]
  - Cough [Recovered/Resolved]
  - Skin warm [Unknown]
  - Oropharyngeal pain [Recovered/Resolved]
  - Arthralgia [Recovered/Resolved]
  - Blood pressure diastolic abnormal [Unknown]
  - Oral herpes [Not Recovered/Not Resolved]
  - Arthralgia [Unknown]
  - Abdominal pain [Not Recovered/Not Resolved]
  - Pain [Recovered/Resolved]
  - Rheumatoid arthritis [Not Recovered/Not Resolved]
  - Depression [Not Recovered/Not Resolved]
  - Joint swelling [Not Recovered/Not Resolved]
  - Hypertension [Recovering/Resolving]
  - White blood cell count increased [Unknown]
  - Blood pressure diastolic decreased [Unknown]

NARRATIVE: CASE EVENT DATE: 20130714
